FAERS Safety Report 5372917-5 (Version None)
Quarter: 2007Q2

REPORT INFORMATION
  Report Type: 
  Country: None (occurrence: None)
  Receive Date: 20070621
  Receipt Date: 20070313
  Transmission Date: 20071010
  Serious: Yes (Death)
  Sender: FDA-Public Use
  Company Number: US-CVT-070075

PATIENT
  Age: 53 Year
  Sex: Female

DRUGS (9)
  1. RANEXA [Suspect]
     Indication: ANGINA PECTORIS
     Dosage: 500 MG, BID, ORAL
     Route: 048
     Dates: start: 20060501
  2. METHOTREXATE/00113801/(METHOTREXATE) [Concomitant]
  3. ARAVA [Concomitant]
  4. TOPROL-XL [Concomitant]
  5. ACTOS/01460201/ (PIOGLITAZONE) [Concomitant]
  6. NITRODUR II (GLYCERYL TRINITRATE) [Concomitant]
  7. NITROGLYCERIN [Concomitant]
  8. CRESTOR/01588601/ (ROSUVASTATIN) [Concomitant]
  9. INDAPAMIDE [Concomitant]

REACTIONS (1)
  - ARRHYTHMIA [None]
